FAERS Safety Report 13537351 (Version 1)
Quarter: 2017Q2

REPORT INFORMATION
  Report Type: Spontaneous
  Country: DK (occurrence: DK)
  Receive Date: 20170511
  Receipt Date: 20170511
  Transmission Date: 20170830
  Serious: Yes (Other)
  Sender: FDA-Public Use
  Company Number: PHHY2017DK067286

PATIENT
  Age: 61 Year
  Sex: Male

DRUGS (2)
  1. BRILIQUE [Suspect]
     Active Substance: TICAGRELOR
     Indication: MYOCARDIAL ISCHAEMIA
     Dosage: 90 MG, QD
     Route: 065
  2. ACETYLSALICYLIC ACID [Suspect]
     Active Substance: ASPIRIN
     Indication: MYOCARDIAL ISCHAEMIA
     Dosage: 75 MG, QD
     Route: 065

REACTIONS (1)
  - Subdural haematoma [Unknown]
